FAERS Safety Report 4796491-7 (Version None)
Quarter: 2005Q4

REPORT INFORMATION
  Report Type: 
  Country: None (occurrence: None)
  Receive Date: 20051006
  Receipt Date: 20051006
  Transmission Date: 20060501
  Serious: Yes (Life-Threatening, Hospitalization)
  Sender: FDA-Public Use
  Company Number: None

PATIENT
  Age: 84 Year
  Sex: Male
  Weight: 69 kg

DRUGS (9)
  1. WARFARIN SODIUM [Suspect]
     Indication: ATRIAL FIBRILLATION
     Dosage: 5MG/2.5MG PO QD ON ALT. DAYS
     Route: 048
  2. FOLIC ACID [Concomitant]
  3. METOPROLOL SUCCINATE [Concomitant]
  4. AMLODIPINE [Concomitant]
  5. SIMVASTATIN [Concomitant]
  6. NIACIN [Concomitant]
  7. ZOLPIDEM TARTRATE [Concomitant]
  8. RANITIDINE [Concomitant]
  9. DIAZEPAM [Concomitant]

REACTIONS (5)
  - CATHETER SITE HAEMORRHAGE [None]
  - EPISTAXIS [None]
  - GINGIVAL BLEEDING [None]
  - HAEMOGLOBIN DECREASED [None]
  - INTERNATIONAL NORMALISED RATIO INCREASED [None]
